FAERS Safety Report 12947884 (Version 1)
Quarter: 2016Q4

REPORT INFORMATION
  Report Type: Spontaneous
  Country: FR (occurrence: FR)
  Receive Date: 20161117
  Receipt Date: 20161117
  Transmission Date: 20170207
  Serious: Yes (Disabling)
  Sender: FDA-Public Use
  Company Number: FR-ABBVIE-16K-056-1777744-00

PATIENT
  Sex: Female

DRUGS (2)
  1. HUMIRA [Suspect]
     Active Substance: ADALIMUMAB
     Indication: PROCTITIS
     Route: 058
     Dates: start: 20160907, end: 20161109
  2. AERIUS [Concomitant]
     Active Substance: DESLORATADINE
     Indication: PRODUCT USED FOR UNKNOWN INDICATION

REACTIONS (5)
  - Pruritus generalised [Not Recovered/Not Resolved]
  - Paraesthesia [Unknown]
  - Skin lesion [Unknown]
  - Rash erythematous [Unknown]
  - Erythema [Unknown]

NARRATIVE: CASE EVENT DATE: 2016
